FAERS Safety Report 8170512-6 (Version None)
Quarter: 2012Q1

REPORT INFORMATION
  Report Type: 
  Country: None (occurrence: None)
  Receive Date: 20120228
  Receipt Date: 20120220
  Transmission Date: 20120608
  Serious: Yes (Death)
  Sender: FDA-Public Use
  Company Number: US-ALLERGAN-1105617US

PATIENT
  Age: 78 Year
  Sex: Female
  Weight: 49.887 kg

DRUGS (5)
  1. CELEXA [Concomitant]
     Indication: DEPRESSION
     Dosage: 40 MG, QD
  2. BOTULINUM TOXIN TYPE A [Suspect]
     Indication: PIRIFORMIS SYNDROME
     Dosage: 155 UNITS, SINGLE
     Dates: start: 20110330, end: 20110330
  3. BOTULINUM TOXIN TYPE A [Suspect]
     Indication: MIGRAINE
     Dosage: 100 UNITS, SINGLE
     Dates: start: 20110301, end: 20110301
  4. CARBIDOPA + LEVODOPA [Concomitant]
     Indication: PARKINSON'S DISEASE
     Dosage: UNK
  5. VICODIN [Concomitant]
     Indication: PAIN
     Dosage: UNK

REACTIONS (5)
  - ASTHENIA [None]
  - HIP FRACTURE [None]
  - NECK PAIN [None]
  - DYSPHAGIA [None]
  - FALL [None]
